FAERS Safety Report 4945815-6 (Version None)
Quarter: 2006Q1

REPORT INFORMATION
  Report Type: 
  Country: None (occurrence: None)
  Receive Date: 20060117
  Receipt Date: 20050909
  Transmission Date: 20060701
  Serious: Yes (Other)
  Sender: FDA-Public Use
  Company Number: A03200502838

PATIENT
  Age: 78 Year
  Sex: Male
  Weight: 72.56 kg

DRUGS (7)
  1. PLAVIX [Suspect]
     Indication: CORONARY ARTERIAL STENT INSERTION
     Dosage: 75 MG QD- ORAL
     Route: 048
     Dates: start: 20020101
  2. LISINOPRIL [Concomitant]
  3. SIMVASTATIN [Concomitant]
  4. FOLIC ACID [Concomitant]
  5. VITAMIN B6 [Concomitant]
  6. VITAMIN B-12 [Concomitant]
  7. FISH OIL [Concomitant]

REACTIONS (1)
  - OESOPHAGEAL HAEMORRHAGE [None]
